FAERS Safety Report 20040489 (Version 1)
Quarter: 2021Q4

REPORT INFORMATION
  Report Type: Spontaneous
  Country: US (occurrence: None)
  Receive Date: 20211104
  Receipt Date: 20211104
  Transmission Date: 20220303
  Serious: No
  Sender: FDA-Public Use
  Company Number: None

PATIENT

DRUGS (2)
  1. PHENYLEPHRINE [Suspect]
     Active Substance: PHENYLEPHRINE HYDROCHLORIDE
  2. EPINEPHRINE [Suspect]
     Active Substance: EPINEPHRINE

REACTIONS (7)
  - Product preparation error [None]
  - Accidental overdose [None]
  - Accidental underdose [None]
  - Incorrect dose administered [None]
  - Intercepted product storage error [None]
  - Cardiac arrest [None]
  - Blood pressure increased [None]
